FAERS Safety Report 5893850-6 (Version None)
Quarter: 2008Q3

REPORT INFORMATION
  Report Type: 
  Country: None (occurrence: None)
  Receive Date: 20080923
  Receipt Date: 20071106
  Transmission Date: 20090109
  Serious: No
  Sender: FDA-Public Use
  Company Number: US-ASTRAZENECA-2007UW25756

PATIENT
  Age: 21 Year
  Sex: Male

DRUGS (3)
  1. SEROQUEL [Suspect]
  2. SEROQUEL [Suspect]
     Dosage: 100 MG BID, 50 MG HS
     Route: 048
  3. DEPAKOTE [Concomitant]

REACTIONS (2)
  - CRYING [None]
  - HYPERHIDROSIS [None]
